FAERS Safety Report 16984686 (Version 1)
Quarter: 2019Q4

REPORT INFORMATION
  Report Type: Report from Study
  Country: US (occurrence: US)
  Receive Date: 20191101
  Receipt Date: 20191101
  Transmission Date: 20200122
  Serious: Yes (Other)
  Sender: FDA-Public Use
  Company Number: US-JNJFOC-20190136963

PATIENT
  Age: 79 Year
  Sex: Male

DRUGS (1)
  1. IMBRUVICA [Suspect]
     Active Substance: IBRUTINIB
     Indication: WALDENSTROM^S MACROGLOBULINAEMIA
     Dosage: START PERIOD: 1343 DAYS?420 MG, QD
     Route: 048
     Dates: start: 20150515

REACTIONS (11)
  - Oropharyngeal pain [Recovered/Resolved]
  - Platelet count decreased [Unknown]
  - Upper respiratory tract congestion [Recovered/Resolved]
  - Pyrexia [Recovered/Resolved]
  - Laryngitis [Not Recovered/Not Resolved]
  - Blood bilirubin increased [Recovered/Resolved]
  - Intermittent claudication [Not Recovered/Not Resolved]
  - Blood immunoglobulin M abnormal [Recovering/Resolving]
  - Pneumonia [Recovered/Resolved]
  - Abdominal discomfort [Recovered/Resolved]
  - Vein disorder [Not Recovered/Not Resolved]

NARRATIVE: CASE EVENT DATE: 2016
